FAERS Safety Report 9609643 (Version 1)
Quarter: 2013Q4

REPORT INFORMATION
  Report Type: Spontaneous
  Country: IT (occurrence: None)
  Receive Date: 20131007
  Receipt Date: 20131007
  Transmission Date: 20140711
  Serious: Yes (Other)
  Sender: FDA-Public Use
  Company Number: AUR-APL-2013-08084

PATIENT
  Age: 63 Year
  Sex: Male

DRUGS (1)
  1. PRAMIPEXOLE [Suspect]
     Indication: RESTLESS LEGS SYNDROME
     Dosage: 0.25 MG (0.25 MG, 1 IN 1 D), UNKNOWN

REACTIONS (10)
  - Substance-induced psychotic disorder [None]
  - Paranoia [None]
  - Hallucinations, mixed [None]
  - Delusion [None]
  - Irritability [None]
  - Impulsive behaviour [None]
  - Aggression [None]
  - Suspiciousness [None]
  - Psychomotor hyperactivity [None]
  - Restlessness [None]
